FAERS Safety Report 18522432 (Version 3)
Quarter: 2025Q2

REPORT INFORMATION
  Report Type: Spontaneous
  Country: PT (occurrence: PT)
  Receive Date: 20201119
  Receipt Date: 20250624
  Transmission Date: 20250716
  Serious: Yes (Hospitalization, Other)
  Sender: AUROBINDO
  Company Number: PT-EMA-DD-20201023-Z4X8Q8-141104

PATIENT
  Age: 71 Year
  Sex: Male

DRUGS (6)
  1. AMIODARONE [Suspect]
     Active Substance: AMIODARONE
     Indication: Atrial flutter
     Route: 040
  2. AMIODARONE [Suspect]
     Active Substance: AMIODARONE
     Route: 040
  3. BISOPROLOL [Suspect]
     Active Substance: BISOPROLOL
     Indication: Atrial flutter
     Route: 065
  4. AMIODARONE [Suspect]
     Active Substance: AMIODARONE
     Indication: Atrial flutter
     Route: 065
  5. DIGOXIN [Suspect]
     Active Substance: DIGOXIN
     Indication: Atrial flutter
     Route: 065
  6. VERAPAMIL [Suspect]
     Active Substance: VERAPAMIL HYDROCHLORIDE
     Indication: Atrial flutter
     Route: 065

REACTIONS (3)
  - Type I hypersensitivity [Recovered/Resolved]
  - Urticaria [Recovered/Resolved]
  - Drug ineffective [Unknown]
